FAERS Safety Report 7598189-9 (Version None)
Quarter: 2011Q3

REPORT INFORMATION
  Report Type: 
  Country: None (occurrence: None)
  Receive Date: 20110708
  Receipt Date: 20110621
  Transmission Date: 20111222
  Serious: Yes (Death)
  Sender: FDA-Public Use
  Company Number: US-PFIZER INC-US-WYE-H07565909

PATIENT
  Age: 31 Year
  Sex: Female

DRUGS (11)
  1. ACETAMINOPHEN [Suspect]
     Dosage: UNK
     Route: 048
     Dates: start: 20070101, end: 20070101
  2. VENLAFAXINE HCL [Suspect]
     Dosage: UNK
     Route: 048
     Dates: start: 20070101, end: 20070101
  3. TRAZODONE HCL [Suspect]
     Dosage: UNK
     Route: 048
     Dates: start: 20070101, end: 20070101
  4. VALPROIC ACID [Suspect]
     Dosage: UNK
     Route: 048
     Dates: start: 20070101, end: 20070101
  5. DIPHENHYDRAMINE HCL [Suspect]
     Dosage: UNK
     Route: 048
     Dates: start: 20070101, end: 20070101
  6. CODEINE [Suspect]
     Dosage: UNK
     Route: 048
     Dates: start: 20070101, end: 20070101
  7. PROMETHAZINE [Suspect]
     Dosage: UNK
     Route: 048
     Dates: start: 20070101, end: 20070101
  8. DULOXETIME HYDROCHLORIDE [Suspect]
     Dosage: UNK
     Route: 048
     Dates: start: 20070101, end: 20070101
  9. ETHANOL [Suspect]
     Dosage: UNK
     Route: 048
     Dates: start: 20070101, end: 20070101
  10. PSEUDOEPHEDRINE HCL [Suspect]
     Dosage: UNK
     Route: 048
     Dates: start: 20070101, end: 20070101
  11. HYDROCODONE [Suspect]
     Dosage: UNK
     Route: 048
     Dates: start: 20070101, end: 20070101

REACTIONS (1)
  - DEATH [None]
